FAERS Safety Report 12608318 (Version 3)
Quarter: 2016Q3

REPORT INFORMATION
  Report Type: Report from Study
  Country: US (occurrence: US)
  Receive Date: 20160729
  Receipt Date: 20160819
  Transmission Date: 20161109
  Serious: Yes (Other)
  Sender: FDA-Public Use
  Company Number: US-GILEAD-2016-0223497

PATIENT
  Age: 78 Year
  Sex: Male
  Weight: 95.24 kg

DRUGS (22)
  1. LASIX [Concomitant]
     Active Substance: FUROSEMIDE
  2. FINASTERIDE. [Concomitant]
     Active Substance: FINASTERIDE
  3. BISOPROLOL [Concomitant]
     Active Substance: BISOPROLOL
  4. KRILL OIL                          /01334101/ [Concomitant]
  5. TAMSULOSIN [Concomitant]
     Active Substance: TAMSULOSIN
  6. LATANOPROST. [Concomitant]
     Active Substance: LATANOPROST
  7. ASPIRIN 81 [Concomitant]
     Active Substance: ASPIRIN
  8. RAPAFLO [Concomitant]
     Active Substance: SILODOSIN
  9. ATORVASTATIN [Concomitant]
     Active Substance: ATORVASTATIN
  10. COMBIVENT RESPIMAT [Concomitant]
     Active Substance: ALBUTEROL SULFATE\IPRATROPIUM BROMIDE
  11. IRON [Concomitant]
     Active Substance: IRON
  12. AMBRISENTAN [Suspect]
     Active Substance: AMBRISENTAN
     Indication: PULMONARY HYPERTENSION
     Dosage: 5 MG, QD
     Route: 065
  13. CENTRUM SILVER ADULTS 50+ [Concomitant]
     Active Substance: MINERALS\VITAMINS
  14. RANITIDINE. [Concomitant]
     Active Substance: RANITIDINE
  15. FLUOROURACIL. [Concomitant]
     Active Substance: FLUOROURACIL
  16. MIRTAZAPINE. [Concomitant]
     Active Substance: MIRTAZAPINE
  17. AZELASTINE [Concomitant]
     Active Substance: AZELASTINE
  18. OXYGEN. [Concomitant]
     Active Substance: OXYGEN
     Dosage: 6 L, Q1MINUTE
     Dates: start: 20160712
  19. METFORMIN [Concomitant]
     Active Substance: METFORMIN HYDROCHLORIDE
  20. CLOPIDOGREL BISULFATE. [Concomitant]
     Active Substance: CLOPIDOGREL BISULFATE
  21. ADVAIR HFA [Concomitant]
     Active Substance: FLUTICASONE PROPIONATE\SALMETEROL XINAFOATE
  22. OXYGEN. [Concomitant]
     Active Substance: OXYGEN
     Dosage: 4 L, Q1MINUTE

REACTIONS (9)
  - Chest discomfort [Unknown]
  - Dizziness [Unknown]
  - Fluid retention [Unknown]
  - Swelling [Unknown]
  - Oxygen saturation decreased [Unknown]
  - Hypoxia [Unknown]
  - Blood pressure increased [Unknown]
  - Oedema [Recovered/Resolved]
  - Dyspnoea [Recovered/Resolved]

NARRATIVE: CASE EVENT DATE: 20160623
